FAERS Safety Report 8796799 (Version 2)
Quarter: 2012Q4

REPORT INFORMATION
  Report Type: 
  Country: JP (occurrence: JP)
  Receive Date: 20120917
  Receipt Date: 20121030
  Transmission Date: 20130627
  Serious: Yes (Other)
  Sender: FDA-Public Use
  Company Number: JP-JNJFOC-20120906230

PATIENT
  Age: 80 Year
  Sex: Male
  Weight: 71 kg

DRUGS (3)
  1. XARELTO [Suspect]
     Indication: PRODUCT USED FOR UNKNOWN INDICATION
     Route: 048
     Dates: start: 20120920, end: 20120926
  2. BLOPRESS [Concomitant]
     Indication: HYPERTENSION
     Dosage: Daily dose
     Route: 048
     Dates: start: 20051119
  3. HARNAL [Concomitant]
     Indication: BENIGN PROSTATIC HYPERPLASIA
     Dosage: Daily dose
     Route: 048
     Dates: start: 20120411

REACTIONS (1)
  - Dysuria [Recovered/Resolved]
